FAERS Safety Report 11832285 (Version 1)
Quarter: 2015Q4

REPORT INFORMATION
  Report Type: Report from Study
  Country: US (occurrence: US)
  Receive Date: 20151214
  Receipt Date: 20151214
  Transmission Date: 20160305
  Serious: Yes (Other)
  Sender: FDA-Public Use
  Company Number: US-ACTELION-A-NJ2015-126149

PATIENT
  Age: 68 Year
  Sex: Male

DRUGS (2)
  1. RIOCIGUAT [Concomitant]
     Active Substance: RIOCIGUAT
  2. MACITENTAN [Suspect]
     Active Substance: MACITENTAN
     Indication: PULMONARY ARTERIAL HYPERTENSION
     Dosage: 10 MG, QD
     Route: 048
     Dates: start: 20150922, end: 20151021

REACTIONS (11)
  - Photophobia [Unknown]
  - Blood pressure decreased [Recovered/Resolved]
  - Nasopharyngitis [Unknown]
  - Rales [Recovered/Resolved]
  - Dyspnoea [Unknown]
  - Dyspnoea exertional [Unknown]
  - Atrial fibrillation [Unknown]
  - Oxygen saturation decreased [Unknown]
  - Eye irritation [Unknown]
  - Cough [Unknown]
  - Hypotension [Unknown]
